FAERS Safety Report 26186574 (Version 1)
Quarter: 2025Q4

REPORT INFORMATION
  Report Type: Spontaneous
  Country: JP (occurrence: JP)
  Receive Date: 20251222
  Receipt Date: 20251222
  Transmission Date: 20260117
  Serious: Yes (Other)
  Sender: ORGANON
  Company Number: JP-MEIJISEIKA-202507431_P_1

PATIENT
  Age: 48 Year
  Sex: Male

DRUGS (1)
  1. REFLEX [Suspect]
     Active Substance: MIRTAZAPINE
     Dosage: UNK
     Route: 061

REACTIONS (1)
  - Electrocardiogram QRS complex prolonged [Unknown]
